FAERS Safety Report 5657951-X (Version None)
Quarter: 2008Q1

REPORT INFORMATION
  Report Type: 
  Country: None (occurrence: None)
  Receive Date: 20080305
  Receipt Date: 20080220
  Transmission Date: 20080703
  Serious: Yes (Hospitalization)
  Sender: FDA-Public Use
  Company Number: DSA_31495_2008

PATIENT
  Sex: Male

DRUGS (7)
  1. LORAZEPAM [Suspect]
     Dosage: (22.5 MG 1X NOT THE PRESCRIBED AMOUNT.  ORAL)
     Route: 048
     Dates: start: 20080220, end: 20080220
  2. AVANDIA [Suspect]
     Dosage: (176 MG 1X NOT THE PRESCRIBED AMOUNT ORAL)
     Route: 048
     Dates: start: 20080220, end: 20080220
  3. BISOPROLOL FUMARATE [Suspect]
     Dosage: (170 MG 1X NOT THE PRESCRIBED AMOUNT ORAL)
     Route: 048
     Dates: start: 20080220, end: 20080220
  4. IBUPROFEN [Suspect]
     Dosage: (2400 MG 1X NOT THE PRESCRIBED AMOUNT ORAL)
     Route: 048
     Dates: start: 20080220, end: 20080220
  5. MIRTAZAPINE [Suspect]
     Dosage: (300 MG 1X NOT THE PRESCRIBED AMOUNT.  ORAL)
     Route: 048
     Dates: start: 20080220
  6. PAROXETINE HCL [Suspect]
     Dosage: (400 MG 1X NOT THE PRESCRIBED AMOUNT.  ORAL)
     Route: 048
     Dates: start: 20080220
  7. CHLORPROTHIXENE HYDROCHLORIDE (TRUXAL - CHLORPROTHIXENE HYDROCHLORIDE) [Suspect]
     Dosage: (210 MG 1X NOT THE PRESCRIBED AMOUNT.  ORAL)
     Route: 048
     Dates: start: 20080220, end: 20080220

REACTIONS (5)
  - HYPERTENSION [None]
  - OVERDOSE [None]
  - STUPOR [None]
  - SUICIDE ATTEMPT [None]
  - TACHYCARDIA [None]
